FAERS Safety Report 9286804 (Version 1)
Quarter: 2013Q2

REPORT INFORMATION
  Report Type: Spontaneous
  Country: FR (occurrence: FR)
  Receive Date: 20130513
  Receipt Date: 20130513
  Transmission Date: 20140414
  Serious: Yes (Death)
  Sender: FDA-Public Use
  Company Number: FR-ALEXION-A201300992

PATIENT
  Age: 43 Year
  Sex: 0

DRUGS (3)
  1. SOLIRIS 300MG [Suspect]
     Indication: ANTIPHOSPHOLIPID SYNDROME
     Dosage: UNK
     Route: 042
     Dates: start: 20130422
  2. SOLIRIS 300MG [Suspect]
     Indication: OFF LABEL USE
  3. HEPARIN [Concomitant]

REACTIONS (1)
  - Cerebral haemorrhage [Fatal]
